FAERS Safety Report 11796838 (Version 2)
Quarter: 2015Q4

REPORT INFORMATION
  Report Type: Spontaneous
  Country: US (occurrence: US)
  Receive Date: 20151203
  Receipt Date: 20151214
  Transmission Date: 20160305
  Serious: No
  Sender: FDA-Public Use
  Company Number: US-APOTEX-2015AP008482

PATIENT
  Sex: Female

DRUGS (1)
  1. FENTANYL TRANSDERMAL SYSTEM [Suspect]
     Active Substance: FENTANYL
     Indication: COMPLEX REGIONAL PAIN SYNDROME
     Dosage: 25 ?G/HR
     Route: 062

REACTIONS (2)
  - Breakthrough pain [Recovered/Resolved]
  - Product adhesion issue [Recovered/Resolved]
